FAERS Safety Report 5913538-2 (Version None)
Quarter: 2008Q4

REPORT INFORMATION
  Report Type: 
  Country: None (occurrence: None)
  Receive Date: 20081009
  Receipt Date: 20080826
  Transmission Date: 20090506
  Serious: No
  Sender: FDA-Public Use
  Company Number: US-BAYER-200812284BCC

PATIENT
  Age: 48 Year
  Sex: Female
  Weight: 64 kg

DRUGS (3)
  1. ALEVE [Suspect]
     Indication: ANALGESIA
     Route: 048
  2. NAPROXEN [Suspect]
     Indication: PAIN
     Route: 048
     Dates: start: 19940101
  3. BAYER PM [Concomitant]

REACTIONS (3)
  - ADVERSE DRUG REACTION [None]
  - NAUSEA [None]
  - PAIN [None]
